FAERS Safety Report 5140871-7 (Version None)
Quarter: 2006Q4

REPORT INFORMATION
  Report Type: 
  Country: None (occurrence: None)
  Receive Date: 20061026
  Receipt Date: 20061016
  Transmission Date: 20070319
  Serious: Yes (Other)
  Sender: FDA-Public Use
  Company Number: 2006126436

PATIENT
  Age: 19 Year
  Sex: Female
  Weight: 60 kg

DRUGS (3)
  1. ATORVASTATIN CALCIUM [Suspect]
     Indication: TYPE IIA HYPERLIPIDAEMIA
     Dosage: 40 MG ORAL
     Route: 048
     Dates: start: 20020529, end: 20030501
  2. GOSERELIN [Concomitant]
  3. ANTIBIOTICS [Concomitant]

REACTIONS (6)
  - ABORTION INDUCED [None]
  - CONGENITAL ANOMALY [None]
  - CONGENITAL HYDROCEPHALUS [None]
  - DRUG EXPOSURE DURING PREGNANCY [None]
  - LIMB MALFORMATION [None]
  - PREGNANCY [None]
